FAERS Safety Report 25286921 (Version 1)
Quarter: 2025Q2

REPORT INFORMATION
  Report Type: Spontaneous
  Country: US (occurrence: None)
  Receive Date: 20250508
  Receipt Date: 20250508
  Transmission Date: 20250717
  Serious: No
  Sender: FDA-CTU
  Company Number: None

PATIENT
  Sex: Female

DRUGS (3)
  1. OPSUMIT [Suspect]
     Active Substance: MACITENTAN
     Indication: Pulmonary arterial hypertension
     Dosage: 10 MG DAILY ORAL ?
     Route: 048
  2. ADEMPAS [Suspect]
     Active Substance: RIOCIGUAT
  3. TORSEMIDE [Suspect]
     Active Substance: TORSEMIDE

REACTIONS (1)
  - Blood pressure decreased [None]
